FAERS Safety Report 5474335-8 (Version None)
Quarter: 2007Q4

REPORT INFORMATION
  Report Type: 
  Country: None (occurrence: None)
  Receive Date: 20071002
  Receipt Date: 20070927
  Transmission Date: 20080405
  Serious: Yes (Life-Threatening, Other)
  Sender: FDA-Public Use
  Company Number: PHBS2007BR16094

PATIENT
  Age: 67 Year
  Sex: Female
  Weight: 82 kg

DRUGS (2)
  1. CLORETO DE POTASSIO [Suspect]
     Indication: MUSCLE SPASMS
     Dosage: 1 TABLET, PRN
     Route: 048
  2. ATENOLOL W/HYDROCHLOROTHIAZIDE [Concomitant]
     Indication: HYPERTENSION
     Dosage: 1 TABLET/DAY
     Route: 048

REACTIONS (5)
  - BREAST CANCER FEMALE [None]
  - CATARACT [None]
  - INFECTION [None]
  - MUSCLE SPASMS [None]
  - SURGERY [None]
